FAERS Safety Report 20237486 (Version 1)
Quarter: 2021Q4

REPORT INFORMATION
  Report Type: Other
  Country: JP (occurrence: JP)
  Receive Date: 20211228
  Receipt Date: 20211228
  Transmission Date: 20220303
  Serious: Yes (Other)
  Sender: FDA-Public Use
  Company Number: JP-CHUGAI-2021032703

PATIENT
  Age: 66 Year
  Sex: Male
  Weight: 62.6 kg

DRUGS (5)
  1. ATEZOLIZUMAB [Suspect]
     Active Substance: ATEZOLIZUMAB
     Indication: Lung adenocarcinoma
     Dosage: 1200 MILLIGRAM, QD
     Route: 041
     Dates: start: 20210407, end: 20210407
  2. BEVACIZUMAB [Suspect]
     Active Substance: BEVACIZUMAB
     Indication: Lung adenocarcinoma
     Dosage: 930 MILLIGRAM, QD
     Route: 041
     Dates: start: 20210407, end: 20210407
  3. ABRAXANE [Suspect]
     Active Substance: PACLITAXEL
     Indication: Lung adenocarcinoma
     Dosage: 330 MILLIGRAM, QD
     Route: 041
     Dates: start: 20210407, end: 20210407
  4. ABRAXANE [Concomitant]
     Active Substance: PACLITAXEL
     Indication: Lung adenocarcinoma
     Dosage: 330 MILLIGRAM, QD
     Route: 041
     Dates: start: 20210413, end: 20210413
  5. CARBOPLATIN [Concomitant]
     Active Substance: CARBOPLATIN
     Indication: Lung adenocarcinoma
     Dosage: 630 MILLIGRAM, QD
     Route: 041
     Dates: start: 20210407, end: 20210407

REACTIONS (1)
  - Rash [Recovered/Resolved]

NARRATIVE: CASE EVENT DATE: 20210510
